FAERS Safety Report 6287501-9 (Version None)
Quarter: 2009Q3

REPORT INFORMATION
  Report Type: 
  Country: None (occurrence: None)
  Receive Date: 20090727
  Receipt Date: 20090714
  Transmission Date: 20100115
  Serious: Yes (Other)
  Sender: FDA-Public Use
  Company Number: CHPA2009US15382

PATIENT
  Sex: Female

DRUGS (2)
  1. EXCEDRIN (MIGRAINE) [Suspect]
     Indication: HEADACHE
  2. NABUMETONE [Suspect]
     Indication: FIBROMYALGIA
     Dates: start: 20060419, end: 20080714

REACTIONS (3)
  - FIBROMYALGIA [None]
  - INTENTIONAL DRUG MISUSE [None]
  - RENAL FAILURE [None]
